FAERS Safety Report 10882557 (Version 1)
Quarter: 2015Q1

REPORT INFORMATION
  Report Type: Spontaneous
  Country: BR (occurrence: BR)
  Receive Date: 20150303
  Receipt Date: 20150303
  Transmission Date: 20150721
  Serious: Yes (Other)
  Sender: FDA-Public Use
  Company Number: BR-PFIZER INC-2015072004

PATIENT
  Age: 91 Year
  Sex: Female
  Weight: 54 kg

DRUGS (1)
  1. LYRICA [Suspect]
     Active Substance: PREGABALIN
     Indication: PAIN
     Dosage: 1 CAPSULE (75 MG), 2X/DAY
     Route: 048
     Dates: start: 201406

REACTIONS (3)
  - Paralysis [Not Recovered/Not Resolved]
  - Ischaemia [Unknown]
  - Wheelchair user [Unknown]

NARRATIVE: CASE EVENT DATE: 201406
